FAERS Safety Report 10057018 (Version 2)
Quarter: 2014Q2

REPORT INFORMATION
  Report Type: Spontaneous
  Country: US (occurrence: US)
  Receive Date: 20140403
  Receipt Date: 20140501
  Transmission Date: 20141212
  Serious: Yes (Hospitalization)
  Sender: FDA-Public Use
  Company Number: US-ELI_LILLY_AND_COMPANY-US201403010944

PATIENT
  Age: 81 Year
  Sex: Female
  Weight: 45.81 kg

DRUGS (1)
  1. FORTEO [Suspect]
     Indication: OSTEOPOROSIS
     Dosage: UNK, QD
     Route: 058
     Dates: start: 20110321, end: 20140325

REACTIONS (3)
  - Cerebrovascular accident [Not Recovered/Not Resolved]
  - Urinary tract infection [Unknown]
  - Incorrect drug administration duration [Unknown]
